FAERS Safety Report 8890370 (Version 1)
Quarter: 2012Q4

REPORT INFORMATION
  Report Type: 
  Country: DE (occurrence: DE)
  Receive Date: 20121106
  Receipt Date: 20121106
  Transmission Date: 20130627
  Serious: Yes (Death, Other)
  Sender: FDA-Public Use
  Company Number: DE-WATSON-2012-18984

PATIENT
  Age: 59 Year
  Sex: Female

DRUGS (4)
  1. MYCOPHENOLATE MOFETIL (UNKNOWN) [Suspect]
     Indication: HEART TRANSPLANT
     Dosage: UNK, unknown
     Route: 065
  2. CYCLOSPORINE (WATSON LABORATORIES) [Suspect]
     Indication: HEART TRANSPLANT
     Dosage: UNK, unknown
     Route: 065
  3. DEXAMETHASONE [Suspect]
     Indication: HEART TRANSPLANT
     Dosage: 10 mg/mm
     Route: 065
  4. EVEROLIMUS [Suspect]
     Indication: HEART TRANSPLANT
     Dosage: 4-8 pg/microL
     Route: 065

REACTIONS (3)
  - Post transplant lymphoproliferative disorder [Fatal]
  - Infection [Not Recovered/Not Resolved]
  - Renal failure chronic [Not Recovered/Not Resolved]
